FAERS Safety Report 5505685-4 (Version None)
Quarter: 2007Q4

REPORT INFORMATION
  Report Type: 
  Country: None (occurrence: None)
  Receive Date: 20071102
  Receipt Date: 20071022
  Transmission Date: 20080405
  Serious: Yes (Other)
  Sender: FDA-Public Use
  Company Number: FR-PFIZER INC-2007077216

PATIENT
  Sex: Female
  Weight: 50.2 kg

DRUGS (7)
  1. CHAMPIX [Suspect]
     Indication: SMOKING CESSATION THERAPY
     Route: 048
     Dates: start: 20070712, end: 20071001
  2. SERETIDE [Concomitant]
  3. MONTELUKAST SODIUM [Concomitant]
  4. ESCITALOPRAM OXALATE [Concomitant]
     Route: 048
  5. LIPANTHYL [Concomitant]
  6. FLUTICASONE PROPIONATE [Concomitant]
  7. ALPRAZOLAM [Concomitant]
     Route: 048

REACTIONS (10)
  - ASTHENIA [None]
  - CONFUSIONAL STATE [None]
  - FOOD INTOLERANCE [None]
  - HEAD DISCOMFORT [None]
  - HYPOTENSION [None]
  - INSOMNIA [None]
  - NAUSEA [None]
  - SOMNOLENCE [None]
  - VOMITING [None]
  - WEIGHT DECREASED [None]
